FAERS Safety Report 15621789 (Version 1)
Quarter: 2018Q4

REPORT INFORMATION
  Report Type: Spontaneous
  Country: US (occurrence: US)
  Receive Date: 20181115
  Receipt Date: 20181115
  Transmission Date: 20190205
  Serious: No
  Sender: FDA-Public Use
  Company Number: US-JNJFOC-20181101945

PATIENT
  Age: 13 Year
  Sex: Male

DRUGS (4)
  1. RISPERDAL [Suspect]
     Active Substance: RISPERIDONE
     Indication: ORGANIC BRAIN SYNDROME
     Route: 048
     Dates: start: 19960331
  2. RISPERDAL [Suspect]
     Active Substance: RISPERIDONE
     Indication: ORGANIC BRAIN SYNDROME
     Dosage: VARYING DOSES OF 1, 2, 4, 4.5 AND 6 MG
     Route: 048
     Dates: start: 19970415, end: 20040729
  3. RISPERDAL [Suspect]
     Active Substance: RISPERIDONE
     Indication: TOURETTE^S DISORDER
     Route: 048
     Dates: start: 19960331
  4. RISPERDAL [Suspect]
     Active Substance: RISPERIDONE
     Indication: TOURETTE^S DISORDER
     Dosage: VARYING DOSES OF 1, 2, 4, 4.5 AND 6 MG
     Route: 048
     Dates: start: 19970415, end: 20040729

REACTIONS (5)
  - Off label use [Unknown]
  - Weight increased [Unknown]
  - Gynaecomastia [Unknown]
  - Depression [Unknown]
  - Product use in unapproved indication [Unknown]

NARRATIVE: CASE EVENT DATE: 19960331
